FAERS Safety Report 18242419 (Version 3)
Quarter: 2020Q4

REPORT INFORMATION
  Report Type: Spontaneous
  Country: US (occurrence: US)
  Receive Date: 20200908
  Receipt Date: 20201029
  Transmission Date: 20210113
  Serious: No
  Sender: FDA-Public Use
  Company Number: US-ASTRAZENECA-2020SF09813

PATIENT
  Age: 29441 Day
  Sex: Female
  Weight: 65.3 kg

DRUGS (12)
  1. BUMETANIDE. [Concomitant]
     Active Substance: BUMETANIDE
     Indication: BLOOD PRESSURE MEASUREMENT
  2. BABY ASPIRIN [Concomitant]
     Active Substance: ASPIRIN
     Dosage: 81.0MG UNKNOWN
  3. VITAMIN B12 [Concomitant]
     Active Substance: CYANOCOBALAMIN
  4. AMLODIPINE [Concomitant]
     Active Substance: AMLODIPINE BESYLATE
  5. VITAMIN D3 [Concomitant]
     Active Substance: CHOLECALCIFEROL
  6. FLAX OIL [Concomitant]
  7. SYMBICORT [Suspect]
     Active Substance: BUDESONIDE\FORMOTEROL FUMARATE DIHYDRATE
     Indication: DYSPNOEA
     Dosage: 160/4.5MCG, TWO PUFFS TWICE A DAY, 120 DOSES
     Route: 055
     Dates: start: 20200623, end: 20200715
  8. CITALOPRAM [Concomitant]
     Active Substance: CITALOPRAM HYDROBROMIDE
  9. FERROUS [Concomitant]
     Active Substance: IRON
  10. ZYRTEC [Concomitant]
     Active Substance: CETIRIZINE HYDROCHLORIDE
     Dosage: DAILY
  11. ALBUTEROL AER HFA [Concomitant]
     Dosage: 90.0UG UNKNOWN
     Route: 055
  12. FISH OIL [Concomitant]
     Active Substance: FISH OIL

REACTIONS (5)
  - Device malfunction [Unknown]
  - Dyspnoea [Unknown]
  - Product dose omission issue [Unknown]
  - Intentional device misuse [Unknown]
  - Weight increased [Unknown]

NARRATIVE: CASE EVENT DATE: 20200602
